FAERS Safety Report 6424232-6 (Version None)
Quarter: 2009Q4

REPORT INFORMATION
  Report Type: 
  Country: None (occurrence: None)
  Receive Date: 20091102
  Receipt Date: 20091021
  Transmission Date: 20100525
  Serious: Yes (Hospitalization)
  Sender: FDA-Public Use
  Company Number: NL-PFIZER INC-2009286479

PATIENT
  Age: 50 Year
  Sex: Male
  Weight: 129 kg

DRUGS (8)
  1. SUNITINIB MALATE [Suspect]
     Indication: RENAL CELL CARCINOMA
     Dosage: 50 MG, CYCLIC
     Route: 048
     Dates: start: 20060830, end: 20091020
  2. LEVOTHYROXINE [Concomitant]
     Dosage: UNK
     Route: 048
     Dates: start: 20071023
  3. AMLODIPINE BESILATE [Concomitant]
     Dosage: UNK
     Route: 048
     Dates: start: 20070601
  4. PARACETAMOL [Concomitant]
     Dosage: UNK
     Route: 048
     Dates: start: 20070701
  5. METFORMIN HYDROCHLORIDE [Concomitant]
     Dosage: UNK
     Route: 048
     Dates: start: 20081208
  6. SUDOCREM [Concomitant]
     Dosage: UNK
     Route: 061
  7. TOLBUTAMIDE [Concomitant]
     Dosage: UNK
     Route: 048
     Dates: start: 20090305
  8. NOVOMIX [Concomitant]
     Dosage: UNK
     Dates: start: 20090706

REACTIONS (1)
  - ANGINA PECTORIS [None]
